FAERS Safety Report 23096210 (Version 4)
Quarter: 2023Q4

REPORT INFORMATION
  Report Type: Spontaneous
  Country: US (occurrence: US)
  Receive Date: 20231023
  Receipt Date: 20231206
  Transmission Date: 20240110
  Serious: No
  Sender: FDA-Public Use
  Company Number: US-PFIZER INC-202300314932

PATIENT
  Age: 72 Year
  Sex: Female
  Weight: 68.04 kg

DRUGS (1)
  1. GENOTROPIN [Suspect]
     Active Substance: SOMATROPIN
     Indication: Hypothyroidism
     Dosage: 5 MG, 1X/DAY
     Route: 058

REACTIONS (2)
  - Product prescribing issue [Unknown]
  - Device issue [Unknown]
